FAERS Safety Report 7389420 (Version 4)
Quarter: 2012Q4

REPORT INFORMATION
  Report Type: 
  Country: US (occurrence: US)
  Receive Date: 20100517
  Receipt Date: 20121108
  Transmission Date: 20130627
  Serious: Yes (Other)
  Sender: FDA-Public Use
  Company Number: PHEH2010US03438

PATIENT
  Sex: Female

DRUGS (5)
  1. TEGRETOL [Suspect]
     Indication: CONVULSION
  2. DEPAKOTE [Suspect]
  3. KEPPRA [Concomitant]
  4. PREDNISONE [Concomitant]
  5. ENALAPRIL [Concomitant]

REACTIONS (100)
  - Injury [Unknown]
  - Toxic epidermal necrolysis [Unknown]
  - Stevens-Johnson syndrome [Unknown]
  - Emotional distress [Unknown]
  - Anxiety [Unknown]
  - Anhedonia [Unknown]
  - Pain [Unknown]
  - Mental disorder [Unknown]
  - Disability [Unknown]
  - Decreased interest [Unknown]
  - Rash [Unknown]
  - Pruritus [Unknown]
  - Skin discolouration [Unknown]
  - Skin exfoliation [Unknown]
  - Alopecia [Unknown]
  - Nail disorder [Unknown]
  - Pigmentation disorder [Unknown]
  - Urticaria [Unknown]
  - Swelling [Unknown]
  - Skin lesion [Unknown]
  - Mucous membrane disorder [Unknown]
  - Scar [Unknown]
  - Blindness [Unknown]
  - Internal injury [Unknown]
  - Hypersensitivity [Unknown]
  - Acute sinusitis [Unknown]
  - Otitis externa [Unknown]
  - Headache [Unknown]
  - Joint effusion [Unknown]
  - Exostosis [Unknown]
  - Urinary tract infection [Unknown]
  - Neuralgia [Unknown]
  - Mononeuritis [Unknown]
  - Syncope [Unknown]
  - Chest pain [Unknown]
  - Insomnia [Unknown]
  - Paraplegia [Unknown]
  - Cellulitis [Unknown]
  - Gastrooesophageal reflux disease [Unknown]
  - Hypoaesthesia [Unknown]
  - Asthma [Not Recovered/Not Resolved]
  - Paralysis flaccid [Unknown]
  - Hypokalaemia [Unknown]
  - Hip fracture [Unknown]
  - Hepatic encephalopathy [Unknown]
  - Ileus [Unknown]
  - Hepatitis [Unknown]
  - Eczema [Unknown]
  - Status epilepticus [Unknown]
  - Cerebrovascular accident [Unknown]
  - Atelectasis [Unknown]
  - Cerebral atrophy [Unknown]
  - Hepatic function abnormal [Unknown]
  - Coma hepatic [Unknown]
  - Streptococcal infection [Unknown]
  - Cardiomegaly [Unknown]
  - Fall [Unknown]
  - Contusion [Unknown]
  - Ligament sprain [Unknown]
  - Joint swelling [Unknown]
  - Wrist fracture [Unknown]
  - Radius fracture [Unknown]
  - Ear pain [Unknown]
  - Scoliosis [Unknown]
  - Gastritis [Unknown]
  - Renal failure acute [Unknown]
  - Mental status changes [Unknown]
  - Dysphagia [Unknown]
  - Psychogenic seizure [Unknown]
  - Hypovolaemia [Unknown]
  - Vomiting [Unknown]
  - Tricuspid valve incompetence [Unknown]
  - Mitral valve incompetence [Unknown]
  - Pulmonary hypertension [Unknown]
  - Sinus tachycardia [Unknown]
  - Bronchitis [Unknown]
  - Osteoarthritis [Unknown]
  - Neck pain [Unknown]
  - Altered state of consciousness [Unknown]
  - Dermatitis [Unknown]
  - Staphylococcal bacteraemia [Unknown]
  - Blister [Unknown]
  - Haemoptysis [Unknown]
  - Wound haemorrhage [Unknown]
  - Odynophagia [Unknown]
  - Melaena [Unknown]
  - Erythema multiforme [Unknown]
  - Thrombophlebitis [Unknown]
  - Depression [Unknown]
  - Respiratory distress [Unknown]
  - Pleural effusion [Unknown]
  - Pneumonia [Unknown]
  - Hypoxia [Unknown]
  - Rhinitis allergic [Unknown]
  - Laryngitis [Unknown]
  - Multiple sclerosis [Unknown]
  - Fibula fracture [Unknown]
  - Ecchymosis [Unknown]
  - Epilepsy [Unknown]
  - Grand mal convulsion [Unknown]
